FAERS Safety Report 23898870 (Version 2)
Quarter: 2024Q2

REPORT INFORMATION
  Report Type: Spontaneous
  Country: JP (occurrence: JP)
  Receive Date: 20240525
  Receipt Date: 20240629
  Transmission Date: 20240716
  Serious: Yes (Life-Threatening, Hospitalization)
  Sender: FDA-Public Use
  Company Number: JP-ABBVIE-5731069

PATIENT
  Age: 76 Year
  Sex: Female
  Weight: 35 kg

DRUGS (10)
  1. HUMIRA [Suspect]
     Active Substance: ADALIMUMAB
     Indication: Crohn^s disease
     Route: 058
     Dates: start: 20210427, end: 20240409
  2. HUMIRA [Suspect]
     Active Substance: ADALIMUMAB
     Indication: Colitis ulcerative
  3. TORSEMIDE [Concomitant]
     Active Substance: TORSEMIDE
     Indication: Cardiac failure chronic
     Dosage: 4 MILLIGRAM
     Dates: start: 20210126, end: 20240212
  4. FEBUXOSTAT EG [Concomitant]
     Indication: Hyperuricaemia
     Dosage: 20 MILLIGRAM
     Dates: start: 20240213
  5. VONOPRAZAN FUMARATE [Concomitant]
     Active Substance: VONOPRAZAN FUMARATE
     Indication: Gastrooesophageal reflux disease
     Dosage: 20 MILLIGRAM
     Route: 048
     Dates: start: 20150330
  6. METHYLCOBALAMIN [Concomitant]
     Active Substance: METHYLCOBALAMIN
     Indication: Vitamin B12 decreased
     Dosage: 500 MICROGRAM
     Route: 048
     Dates: start: 20190409
  7. DAPRODUSTAT [Concomitant]
     Active Substance: DAPRODUSTAT
     Indication: Nephrogenic anaemia
     Dosage: 4 MILLIGRAM
     Route: 048
     Dates: start: 20240104
  8. SODIUM BICARBONATE [Concomitant]
     Active Substance: SODIUM BICARBONATE
     Indication: Metabolic acidosis
     Dosage: 1000 MILLIGRAM
     Dates: start: 20240116
  9. LEVOTHYROXINE SODIUM [Concomitant]
     Active Substance: LEVOTHYROXINE SODIUM
     Indication: Hypothyroidism
     Dosage: 50 MICROGRAM
     Route: 048
     Dates: start: 20140417
  10. AMLODIPINE BESYLATE [Concomitant]
     Active Substance: AMLODIPINE BESYLATE
     Indication: Hypertension
     Dosage: 2.5 MILLIGRAM
     Dates: start: 20230131

REACTIONS (9)
  - Nephrogenic anaemia [Unknown]
  - Hypertension [Unknown]
  - Lung opacity [Unknown]
  - Hyperuricaemia [Unknown]
  - Metabolic acidosis [Unknown]
  - Cardiac failure acute [Recovering/Resolving]
  - Lung disorder [Unknown]
  - Pleural effusion [Recovered/Resolved]
  - Chronic kidney disease [Unknown]

NARRATIVE: CASE EVENT DATE: 20230131
